FAERS Safety Report 5122049-6 (Version None)
Quarter: 2006Q4

REPORT INFORMATION
  Report Type: 
  Country: None (occurrence: None)
  Receive Date: 20061004
  Receipt Date: 20061004
  Transmission Date: 20070319
  Serious: Yes (Hospitalization)
  Sender: FDA-Public Use
  Company Number: None

PATIENT
  Age: 59 Year
  Sex: Male

DRUGS (1)
  1. DIGOXIN [Suspect]
     Indication: CARDIAC FAILURE CONGESTIVE
     Dosage: 0.125MG  PO  DAILY  (DURATION: MONTHS-YEARS)
     Route: 048

REACTIONS (16)
  - ABNORMAL FAECES [None]
  - ATRIAL FIBRILLATION [None]
  - ATRIAL FLUTTER [None]
  - ATRIOVENTRICULAR BLOCK THIRD DEGREE [None]
  - BLOOD PRESSURE SYSTOLIC DECREASED [None]
  - CARDIAC DISORDER [None]
  - GOUT [None]
  - HEART RATE ABNORMAL [None]
  - HYPOKALAEMIA [None]
  - NAUSEA [None]
  - PAIN [None]
  - RENAL FAILURE ACUTE [None]
  - SINUS BRADYCARDIA [None]
  - SLEEP DISORDER [None]
  - THERAPEUTIC AGENT TOXICITY [None]
  - VOMITING [None]
